FAERS Safety Report 22161477 (Version 22)
Quarter: 2025Q4

REPORT INFORMATION
  Report Type: Spontaneous
  Country: IN (occurrence: IN)
  Receive Date: 20230331
  Receipt Date: 20251201
  Transmission Date: 20260117
  Serious: Yes (Other)
  Sender: PFIZER
  Company Number: IN-PFIZER INC-2020482714

PATIENT
  Age: 37 Year
  Sex: Female

DRUGS (13)
  1. PALBOCICLIB [Suspect]
     Active Substance: PALBOCICLIB
     Indication: Breast cancer metastatic
     Dosage: UNK
  2. PALBOCICLIB [Suspect]
     Active Substance: PALBOCICLIB
     Dosage: 125 MG, 1X/DAY
     Route: 048
     Dates: start: 20200120
  3. PALBOCICLIB [Suspect]
     Active Substance: PALBOCICLIB
     Dosage: 100 MG, 1X/DAY
     Route: 048
     Dates: start: 20210605
  4. PALBOCICLIB [Suspect]
     Active Substance: PALBOCICLIB
     Dosage: 125 MG, 1X/DAY
     Route: 048
     Dates: start: 20210610, end: 202108
  5. PALBOCICLIB [Suspect]
     Active Substance: PALBOCICLIB
     Dosage: 125 MG, CYCLIC, OD FOR 21 DAYS ON, 7 DAYS OFF FOR 2 MONTHS
     Route: 048
  6. PALBOCICLIB [Suspect]
     Active Substance: PALBOCICLIB
     Dosage: 125 MG, CYCLIC, OD FOR 21 DAYS ON, 7 DAYS OFF FOR 2 MONTHS
     Route: 048
  7. PALBOCICLIB [Suspect]
     Active Substance: PALBOCICLIB
     Dosage: 125 MG, CYCLIC OD AS ADVISED - 21 DAYS ON, 7 DAYS OFF FOR 3 MONTHS
     Route: 048
  8. ZOLADEX [Concomitant]
     Active Substance: GOSERELIN ACETATE
     Dosage: UNK, MONTHLY
     Dates: start: 202001
  9. ZOLADEX [Concomitant]
     Active Substance: GOSERELIN ACETATE
     Dosage: UNK, MONTHLY
     Dates: start: 20200727, end: 20201130
  10. ZOLADEX [Concomitant]
     Active Substance: GOSERELIN ACETATE
     Dosage: UNK, MONTHLY
     Dates: start: 20220523
  11. LETROZOLE [Concomitant]
     Active Substance: LETROZOLE
     Dosage: 2.5 MG, 1X/DAY
     Dates: start: 202001
  12. CALCIUM\CHOLECALCIFEROL [Concomitant]
     Active Substance: CALCIUM\CHOLECALCIFEROL
     Dosage: 500 MG, 1X/DAY
     Route: 048
  13. PROTEINEX [Concomitant]
     Dosage: UNK, 1X/DAY (2 TSF OD)

REACTIONS (19)
  - Ovarian disorder [Unknown]
  - Hysterosalpingo-oophorectomy [Unknown]
  - COVID-19 [Recovered/Resolved]
  - Pyrexia [Recovered/Resolved]
  - Oedema peripheral [Unknown]
  - Lymphoedema [Unknown]
  - Pain [Unknown]
  - White blood cell count decreased [Unknown]
  - Gallbladder polyp [Unknown]
  - Fibroadenoma of breast [Unknown]
  - Endometriosis [Recovered/Resolved]
  - Full blood count abnormal [Unknown]
  - Blood cholesterol increased [Unknown]
  - Mean cell volume increased [Unknown]
  - Mean cell haemoglobin concentration decreased [Unknown]
  - Vitamin D decreased [Unknown]
  - Blood triglycerides increased [Unknown]
  - Very low density lipoprotein increased [Unknown]
  - Off label use [Unknown]

NARRATIVE: CASE EVENT DATE: 20201130
